FAERS Safety Report 5673839-2 (Version None)
Quarter: 2008Q2

REPORT INFORMATION
  Report Type: 
  Country: None (occurrence: None)
  Receive Date: 20080226
  Receipt Date: 20070419
  Transmission Date: 20081010
  Serious: Yes (Hospitalization)
  Sender: FDA-Public Use
  Company Number: 493717

PATIENT
  Age: 23 Year
  Sex: Female
  Weight: 61.2 kg

DRUGS (2)
  1. ACCUTANE [Suspect]
     Indication: ACNE
     Dosage: 40 MG 2 PER DAY
     Dates: start: 19870601, end: 19940912
  2. LEVELN (ETHINYL ESTRADIOL/LEVONORGESTREL) [Concomitant]

REACTIONS (8)
  - ANAEMIA [None]
  - DEPRESSED MOOD [None]
  - INFLAMMATORY BOWEL DISEASE [None]
  - LIP DRY [None]
  - OSTEOCHONDROMA [None]
  - PROCTITIS [None]
  - PROCTITIS ULCERATIVE [None]
  - TENDONITIS [None]
